FAERS Safety Report 13342432 (Version 2)
Quarter: 2017Q3

REPORT INFORMATION
  Report Type: Spontaneous
  Country: JP (occurrence: JP)
  Receive Date: 20170316
  Receipt Date: 20170817
  Transmission Date: 20171127
  Serious: Yes (Death)
  Sender: FDA-Public Use
  Company Number: JP-MALLINCKRODT-T201701003

PATIENT
  Age: 48 Year
  Sex: Male
  Weight: 65 kg

DRUGS (29)
  1. METHADONE [Suspect]
     Active Substance: METHADONE HYDROCHLORIDE
     Dosage: 10 MG, 30 MG DAILY DOSE
     Route: 048
     Dates: start: 20140414, end: 20140510
  2. METHADONE [Suspect]
     Active Substance: METHADONE HYDROCHLORIDE
     Dosage: 15 MG, 45 MG DAILY DOSE
     Route: 048
     Dates: start: 20140511, end: 20140518
  3. OXIFAST [Concomitant]
     Active Substance: OXYCODONE
     Indication: ANALGESIC THERAPY
     Dosage: 1-5 MG, PRN
     Route: 051
     Dates: start: 20140228
  4. CONIEL [Concomitant]
     Active Substance: BENIDIPINE HYDROCHLORIDE
     Dosage: 4 MG, UNK
     Route: 048
     Dates: end: 20140813
  5. PRIMPERAN [Concomitant]
     Active Substance: METOCLOPRAMIDE HYDROCHLORIDE
     Dosage: 15 MG, UNK
     Route: 048
     Dates: start: 20140625, end: 20140813
  6. METHADONE [Suspect]
     Active Substance: METHADONE HYDROCHLORIDE
     Dosage: 20 MG, 60 MG DAILY DOSE
     Route: 048
     Dates: start: 20140519, end: 20140530
  7. FENTANYL. [Concomitant]
     Active Substance: FENTANYL
     Indication: ANALGESIC THERAPY
     Dosage: 0.1-0.2 MG, PRN
     Route: 051
     Dates: start: 20140531
  8. EMEND [Concomitant]
     Active Substance: APREPITANT
     Dosage: 125 MG, UNK
     Route: 048
     Dates: start: 20140304, end: 20140304
  9. SIGMART [Concomitant]
     Active Substance: NICORANDIL
     Dosage: 10 MG, UNK
     Route: 048
     Dates: end: 20140813
  10. TRAVELMIN [Concomitant]
     Active Substance: DIMENHYDRINATE
     Dosage: 1 DF, UNK
     Route: 048
     Dates: start: 20140421, end: 20140813
  11. MINOMYCIN [Concomitant]
     Active Substance: MINOCYCLINE HYDROCHLORIDE
     Dosage: 200 MG, UNK
     Route: 048
     Dates: end: 20140813
  12. LOXONIN [Concomitant]
     Active Substance: LOXOPROFEN SODIUM
     Indication: ANALGESIC THERAPY
     Dosage: 180 MG
     Route: 048
     Dates: end: 20140813
  13. ALESION [Concomitant]
     Active Substance: EPINASTINE HYDROCHLORIDE
     Dosage: 20 MG, UNK
     Route: 048
     Dates: start: 20140409, end: 20140813
  14. METHADONE [Suspect]
     Active Substance: METHADONE HYDROCHLORIDE
     Dosage: 65 MG DAILY DOSE
     Route: 048
     Dates: start: 20140531, end: 20140601
  15. METHADONE [Suspect]
     Active Substance: METHADONE HYDROCHLORIDE
     Dosage: 20 MG, 60 MG DAILY DOSE
     Route: 048
     Dates: start: 20140731, end: 20140809
  16. OXNORM [Concomitant]
     Indication: ANALGESIC THERAPY
     Dosage: 5-20 MG, PRN
     Route: 048
     Dates: start: 20140228
  17. TAKEPRON [Concomitant]
     Active Substance: LANSOPRAZOLE
     Dosage: 30 MG, UNK
     Route: 048
     Dates: end: 20140813
  18. MYSLEE [Concomitant]
     Active Substance: ZOLPIDEM TARTRATE
     Dosage: 5MG, UNK
     Route: 048
     Dates: start: 20140519, end: 20140519
  19. ABSTRAL [Concomitant]
     Active Substance: FENTANYL CITRATE
     Indication: ANALGESIC THERAPY
     Dosage: 100 ?G, PRN
     Route: 060
     Dates: start: 20140406
  20. EMEND [Concomitant]
     Active Substance: APREPITANT
     Dosage: 80 MG, UNK
     Route: 048
     Dates: start: 20140305, end: 20140306
  21. NOVAMIN (PROCHLORPERAZINE) [Concomitant]
     Active Substance: PROCHLORPERAZINE
     Dosage: 15 MG, UNK
     Route: 048
     Dates: end: 20140813
  22. MAGLAX [Concomitant]
     Active Substance: MAGNESIUM OXIDE
     Dosage: 750 MG, UNK
     Route: 048
     Dates: end: 20140813
  23. HIBON [Concomitant]
     Active Substance: RIBOFLAVIN
     Dosage: 20 MG, UNK
     Route: 048
     Dates: start: 20140723, end: 20140813
  24. BIOFERMIN [Concomitant]
     Active Substance: BACILLUS SUBTILIS\LACTOBACILLUS ACIDOPHILUS\STREPTOCOCCUS FAECAIS
     Dosage: 3 DF
     Route: 048
     Dates: end: 20140813
  25. SOLANAX [Concomitant]
     Active Substance: ALPRAZOLAM
     Dosage: 0.4 MG, UNK
     Route: 048
     Dates: start: 20140521, end: 20140813
  26. METHADONE [Suspect]
     Active Substance: METHADONE HYDROCHLORIDE
     Indication: CANCER PAIN
     Dosage: 5 MG, 15 MG DAILY DOSE
     Route: 048
     Dates: start: 20140301, end: 20140413
  27. METHADONE [Suspect]
     Active Substance: METHADONE HYDROCHLORIDE
     Dosage: 25 MG, 75 MG DAILY DOSE
     Route: 048
     Dates: start: 20140602, end: 20140708
  28. METHADONE [Suspect]
     Active Substance: METHADONE HYDROCHLORIDE
     Dosage: 30 MG, 90 MG DAILY DOSE
     Route: 048
     Dates: start: 20140709, end: 20140730
  29. FERROMIA [Concomitant]
     Active Substance: FERROUS CITRATE
     Dosage: 100 MG, UNK
     Route: 048
     Dates: end: 20140813

REACTIONS (2)
  - Pyrexia [Not Recovered/Not Resolved]
  - Rectal cancer [Fatal]

NARRATIVE: CASE EVENT DATE: 20140507
